FAERS Safety Report 10566434 (Version 1)
Quarter: 2014Q4

REPORT INFORMATION
  Report Type: Spontaneous
  Country: IE (occurrence: IE)
  Receive Date: 20141105
  Receipt Date: 20141105
  Transmission Date: 20150529
  Serious: Yes (Other)
  Sender: FDA-Public Use
  Company Number: PHHY2014IE142773

PATIENT
  Age: 61 Year
  Sex: Male

DRUGS (3)
  1. FLUDARABINE [Suspect]
     Active Substance: FLUDARABINE PHOSPHATE
     Indication: B-CELL SMALL LYMPHOCYTIC LYMPHOMA
     Dosage: 25 MG/M2 DAYS 1 THROUGH 3 ON A 28-DAY CYCLE
     Route: 065
  2. CYCLOPHOSPHAMIDE. [Suspect]
     Active Substance: CYCLOPHOSPHAMIDE
     Indication: B-CELL SMALL LYMPHOCYTIC LYMPHOMA
     Dosage: 250 MG/M2 DAYS 1 THROUGH 3 ON A 28-DAY CYCLE
     Route: 065
  3. RITUXIMAB [Suspect]
     Active Substance: RITUXIMAB
     Indication: B-CELL SMALL LYMPHOCYTIC LYMPHOMA
     Dosage: 375 MG/M2, DAY 1 FROM THE SECOND CYCLE ONWARD
     Route: 065

REACTIONS (9)
  - Pyelonephritis [Unknown]
  - BK virus infection [Unknown]
  - Haematuria [Recovered/Resolved]
  - Lymphopenia [Unknown]
  - Viral haemorrhagic cystitis [Unknown]
  - Cystitis [Unknown]
  - Pyrexia [Unknown]
  - Ureteral disorder [Unknown]
  - Kidney enlargement [Unknown]
